FAERS Safety Report 16108590 (Version 2)
Quarter: 2021Q1

REPORT INFORMATION
  Report Type: Other
  Country: DE (occurrence: DE)
  Receive Date: 20190323
  Receipt Date: 20210304
  Transmission Date: 20210419
  Serious: Yes (Death, Other)
  Sender: FDA-Public Use
  Company Number: DE-ACCORD-113856

PATIENT
  Sex: Male

DRUGS (3)
  1. CICLOSPORIN [Suspect]
     Active Substance: CYCLOSPORINE
     Indication: IMMUNOSUPPRESSANT DRUG THERAPY
     Dosage: UNK, ALSO RECEIVED FOR HEART TRANSPLANT.
     Route: 065
  2. EVEROLIMUS. [Suspect]
     Active Substance: EVEROLIMUS
     Indication: IMMUNOSUPPRESSANT DRUG THERAPY
     Dosage: ALSO RECEIVED FOR HEART TRANSPLANT.
     Route: 065
  3. TACROLIMUS. [Suspect]
     Active Substance: TACROLIMUS
     Indication: IMMUNOSUPPRESSANT DRUG THERAPY
     Dosage: UNK, ALSO RECEIVED AS ORAL FOR HEART TRANSPLANT.
     Route: 042

REACTIONS (5)
  - Intentional product use issue [Unknown]
  - Heart transplant rejection [Unknown]
  - Therapy non-responder [Unknown]
  - Drug level below therapeutic [Unknown]
  - Sepsis [Fatal]
